FAERS Safety Report 6071119-7 (Version None)
Quarter: 2009Q1

REPORT INFORMATION
  Report Type: 
  Country: None (occurrence: None)
  Receive Date: 20090209
  Receipt Date: 20090203
  Transmission Date: 20090719
  Serious: Yes (Other)
  Sender: FDA-Public Use
  Company Number: US-JNJCH-2009003119

PATIENT
  Age: 52 Year
  Sex: Female
  Weight: 65.8 kg

DRUGS (1)
  1. ROLAIDS EXTRA STRENGTH FRESHMINT [Suspect]
     Indication: DYSPEPSIA
     Dosage: TEXT:4 TABLETS ONCE
     Route: 048
     Dates: start: 20090201, end: 20090201

REACTIONS (2)
  - ANAPHYLACTIC SHOCK [None]
  - URTICARIA [None]
